FAERS Safety Report 7257776-8 (Version None)
Quarter: 2011Q1

REPORT INFORMATION
  Report Type: 
  Country: None (occurrence: None)
  Receive Date: 20110129
  Receipt Date: 20100520
  Transmission Date: 20110831
  Serious: No
  Sender: FDA-Public Use
  Company Number: US-ABBOTT-10P-163-0647086-00

PATIENT
  Age: 48 Year
  Sex: Female

DRUGS (11)
  1. UNKNOWN VARIOUS TOPICAL CREAMS [Concomitant]
     Indication: PRODUCT USED FOR UNKNOWN INDICATION
  2. HUMIRA [Suspect]
     Indication: PSORIASIS
     Route: 058
     Dates: start: 20080801, end: 20081001
  3. CLARITON OTC [Concomitant]
     Indication: CHRONIC SINUSITIS
  4. ELOCON OINT [Concomitant]
     Indication: PRODUCT USED FOR UNKNOWN INDICATION
  5. HUMIRA [Suspect]
     Indication: DERMATITIS ATOPIC
     Route: 058
     Dates: start: 20100208
  6. SINGULAIR [Concomitant]
     Indication: PRODUCT USED FOR UNKNOWN INDICATION
  7. AMEVIVE [Concomitant]
     Indication: CONTRACEPTION
  8. CLOBETASOL PROPIONATE [Concomitant]
     Indication: PRODUCT USED FOR UNKNOWN INDICATION
  9. TAZORAC TOPICAL [Concomitant]
     Indication: PRODUCT USED FOR UNKNOWN INDICATION
     Route: 061
  10. CAPEX [Concomitant]
     Indication: PRODUCT USED FOR UNKNOWN INDICATION
  11. CORDRIN TAPE [Concomitant]
     Indication: PRODUCT USED FOR UNKNOWN INDICATION

REACTIONS (1)
  - DRUG INEFFECTIVE [None]
